FAERS Safety Report 9392768 (Version 1)
Quarter: 2013Q3

REPORT INFORMATION
  Report Type: Spontaneous
  Country: CN (occurrence: CN)
  Receive Date: 20130710
  Receipt Date: 20130710
  Transmission Date: 20140515
  Serious: Yes (Life-Threatening, Hospitalization)
  Sender: FDA-Public Use
  Company Number: CN-COVIDIEN/TYCO HEALTHCARE/MALLINCKRODT-T201303602

PATIENT
  Age: 49 Year
  Sex: Female

DRUGS (1)
  1. OPTIRAY [Suspect]
     Indication: COMPUTERISED TOMOGRAM
     Dosage: 80 ML, SINGLE, 3.5ML/SEC.
     Route: 042
     Dates: start: 20130527, end: 20130527

REACTIONS (6)
  - Muscular weakness [Recovered/Resolved]
  - Incontinence [Recovered/Resolved]
  - Heart rate increased [Recovered/Resolved]
  - Hypotension [Recovered/Resolved]
  - Rash [Recovered/Resolved]
  - Hyperhidrosis [Recovered/Resolved]
